FAERS Safety Report 7675362-2 (Version None)
Quarter: 2011Q3

REPORT INFORMATION
  Report Type: 
  Country: None (occurrence: None)
  Receive Date: 20110810
  Receipt Date: 20110808
  Transmission Date: 20111222
  Serious: Yes (Hospitalization, Disabling, Other)
  Sender: FDA-Public Use
  Company Number: FR-PFIZER INC-2006108647

PATIENT
  Age: 52 Year
  Sex: Male
  Weight: 60 kg

DRUGS (19)
  1. LYRICA [Suspect]
     Indication: PAIN
     Dosage: 75 MG, 1X/DAY
     Route: 048
     Dates: start: 20060621, end: 20060624
  2. VIREAD [Suspect]
     Indication: ACQUIRED IMMUNODEFICIENCY SYNDROME
     Dosage: UNK
     Dates: start: 20060623
  3. INVIRASE [Suspect]
     Indication: ACQUIRED IMMUNODEFICIENCY SYNDROME
     Dosage: UNK
     Dates: start: 20060623
  4. ACETAMINOPHEN [Concomitant]
     Indication: ARTHRALGIA
  5. ZOPICLONE [Concomitant]
     Indication: PAIN
     Dosage: UNK
     Route: 048
     Dates: start: 20050101
  6. LYRICA [Suspect]
     Indication: PAIN IN EXTREMITY
  7. RETROVIR [Suspect]
     Indication: ACQUIRED IMMUNODEFICIENCY SYNDROME
     Dosage: UNK
     Dates: start: 20060623
  8. COMBIVIR [Suspect]
     Dosage: UNK
     Dates: start: 20050928, end: 20060623
  9. LYRICA [Suspect]
     Indication: NERVE INJURY
     Dosage: 525 MG/DAY
     Route: 048
     Dates: start: 20060703, end: 20060713
  10. NORVIR [Suspect]
     Dosage: UNK
     Dates: start: 20040417
  11. LAMICTAL [Concomitant]
     Dosage: UNK
     Dates: end: 20060905
  12. LYRICA [Suspect]
     Indication: FACIAL NEURALGIA
  13. NEURONTIN [Suspect]
     Indication: TRIGEMINAL NEURALGIA
     Dosage: UNK
     Dates: start: 20060101, end: 20060623
  14. LYRICA [Suspect]
     Indication: ARTHRALGIA
     Dosage: 150 MG/DAY
     Route: 048
     Dates: start: 20060625, end: 20060702
  15. LYRICA [Suspect]
     Indication: TEMPORAL ARTERITIS
  16. LYRICA [Suspect]
     Indication: TRIGEMINAL NEURALGIA
  17. BACTRIM [Suspect]
     Dosage: UNK
     Dates: start: 19981027
  18. TELZIR [Suspect]
     Dosage: UNK
     Dates: start: 20050329, end: 20060623
  19. ZOPICLONE [Concomitant]
     Indication: INSOMNIA

REACTIONS (19)
  - VISUAL IMPAIRMENT [None]
  - VISUAL FIELD DEFECT [None]
  - NEUROPATHY PERIPHERAL [None]
  - WEIGHT DECREASED [None]
  - CONSTIPATION [None]
  - BLINDNESS [None]
  - OPTIC NEURITIS [None]
  - VISION BLURRED [None]
  - OPTIC NERVE DISORDER [None]
  - SCOTOMA [None]
  - ERECTILE DYSFUNCTION [None]
  - EJACULATION DISORDER [None]
  - FACIAL PAIN [None]
  - DRY EYE [None]
  - DYSGRAPHIA [None]
  - AMBLYOPIA [None]
  - SUICIDAL IDEATION [None]
  - CHROMATOPSIA [None]
  - DRY MOUTH [None]
